FAERS Safety Report 9358835 (Version 2)
Quarter: 2013Q4

REPORT INFORMATION
  Report Type: Spontaneous
  Country: US (occurrence: US)
  Receive Date: 20130620
  Receipt Date: 20131213
  Transmission Date: 20140711
  Serious: Yes (Hospitalization)
  Sender: FDA-Public Use
  Company Number: US-B.I. PHARMACEUTICALS,INC./RIDGEFIELD-2013-BI-17223BP

PATIENT
  Age: 69 Year
  Sex: Female
  Weight: 52.16 kg

DRUGS (9)
  1. PRADAXA [Suspect]
     Indication: ANTICOAGULANT THERAPY
     Dosage: 150 MG
     Dates: start: 20120409, end: 20120624
  2. PRADAXA [Suspect]
     Indication: ATRIAL FIBRILLATION
     Dosage: 150 MG
     Dates: start: 20120706, end: 20120711
  3. SINGULAIR [Concomitant]
     Dosage: 10 MG
     Dates: start: 2008
  4. DIOVAN [Concomitant]
     Dosage: 80 MG
     Dates: start: 2008
  5. CARDIZEM [Concomitant]
     Dosage: 120 MG
     Dates: start: 2008
  6. PREDNISONE [Concomitant]
     Dosage: 5 MG
     Dates: start: 2011
  7. ADVAIR [Concomitant]
     Route: 055
     Dates: start: 2008
  8. ALBUTEROL [Concomitant]
  9. ASPIRIN [Concomitant]
     Dates: end: 20120624

REACTIONS (7)
  - Rectal haemorrhage [Unknown]
  - Haemorrhagic anaemia [Unknown]
  - Leukocytosis [Recovered/Resolved]
  - Pneumonia [Unknown]
  - Grand mal convulsion [Unknown]
  - Hypocalcaemia [Unknown]
  - Hypomagnesaemia [Unknown]
